FAERS Safety Report 9924466 (Version 1)
Quarter: 2014Q1

REPORT INFORMATION
  Report Type: Not Available
  Country: FR (occurrence: FR)
  Receive Date: 20140226
  Receipt Date: 20140226
  Transmission Date: 20141002
  Serious: Yes (Hospitalization)
  Sender: FDA-Public Use
  Company Number: FR-ASTELLAS-2014EU001443

PATIENT
  Age: 19 Year
  Sex: Male

DRUGS (22)
  1. MYCAMINE [Suspect]
     Dosage: 50 MG, UID/QD
     Route: 065
     Dates: start: 20130918, end: 20131006
  2. ZOVIRAX /00587301/ [Suspect]
     Dosage: 10 MG/KG, TID
     Route: 042
     Dates: start: 20130918, end: 20131006
  3. CYMEVAN [Suspect]
     Dosage: 6 MG/KG, UID/QD
     Route: 042
     Dates: start: 20130917, end: 20131006
  4. INNOHEP [Concomitant]
     Dosage: UNK /ML, UNK
     Route: 065
  5. INEXIUM                            /01479302/ [Concomitant]
     Dosage: 20 MG/DAY, UNKNOWN/D
     Route: 065
  6. DESFERAL [Concomitant]
     Dosage: 5.5 G/DAY, UNKNOWN/D
     Route: 065
  7. FORTUM                             /00559701/ [Concomitant]
     Dosage: 2 G, TID
     Route: 065
  8. TARGOCID [Concomitant]
     Dosage: 400 MG/DAY, UNKNOWN/D
     Route: 065
  9. SPIRAMYCIN [Concomitant]
     Dosage: 1.5 MIU, TID
     Route: 065
  10. BACTRIM [Concomitant]
     Dosage: 800 MG, UNKNOWN/D
     Route: 065
  11. ORACILLIN                          /00001802/ [Concomitant]
     Dosage: 1 UNK, UNK
     Route: 065
  12. FUNGIZONE [Concomitant]
     Dosage: 15 ML, QID
     Route: 065
  13. PYRIDOXINE [Concomitant]
     Dosage: 250 MG, TID
     Route: 065
  14. NIACIN [Concomitant]
     Dosage: 100 MG/DAY, UNKNOWN/D
     Route: 065
  15. BENERVA [Concomitant]
     Dosage: 500 MG, TID
     Route: 065
  16. PHOCYTAN [Concomitant]
     Dosage: 45 ML, TID
     Route: 065
  17. KREDEX [Concomitant]
     Dosage: 6.25 MG, BID
     Route: 065
  18. URSOLVAN [Concomitant]
     Dosage: UNK MG, UNKNOWN/D
     Route: 065
  19. UVESTEROL [Concomitant]
     Dosage: UNK
     Route: 065
  20. CYCLOSPORINE [Concomitant]
     Dosage: 37 MG, BID
  21. LAROXYL [Concomitant]
     Dosage: UNK
     Route: 065
  22. CALCIUM [Concomitant]
     Dosage: 500 MG, TID
     Route: 065

REACTIONS (1)
  - Hepatic encephalopathy [Recovered/Resolved]
